FAERS Safety Report 6829517-7 (Version None)
Quarter: 2010Q3

REPORT INFORMATION
  Report Type: 
  Country: None (occurrence: None)
  Receive Date: 20100709
  Receipt Date: 20070404
  Transmission Date: 20110219
  Serious: Yes (Other)
  Sender: FDA-Public Use
  Company Number: US-PFIZER INC-2007009457

PATIENT
  Age: 57 Year
  Sex: Female
  Weight: 76.7 kg

DRUGS (7)
  1. CHANTIX [Suspect]
     Indication: TOBACCO ABUSE
     Dates: start: 20061205
  2. CHANTIX [Suspect]
     Indication: SMOKING CESSATION THERAPY
  3. LOTREL [Concomitant]
     Dates: start: 20030101
  4. CRESTOR [Concomitant]
     Dates: start: 20060701
  5. LABETALOL HCL [Concomitant]
     Dates: start: 20061101
  6. TRIAMTERENE AND HYDROCHLOROTHIAZIDE [Concomitant]
     Dates: start: 20030101
  7. ACETYLSALICYLIC ACID [Concomitant]

REACTIONS (3)
  - HYPERSENSITIVITY [None]
  - PRURITUS [None]
  - RASH [None]
